FAERS Safety Report 25207764 (Version 5)
Quarter: 2025Q3

REPORT INFORMATION
  Report Type: Report from Study
  Country: GB (occurrence: GB)
  Receive Date: 20250417
  Receipt Date: 20250819
  Transmission Date: 20251020
  Serious: Yes (Other)
  Sender: NOVARTIS
  Company Number: GB-002147023-NVSC2024GB108798

PATIENT
  Sex: Female

DRUGS (4)
  1. COSENTYX [Suspect]
     Active Substance: SECUKINUMAB
     Indication: Ankylosing spondylitis
     Dosage: 150 MG, QMO
     Route: 058
     Dates: start: 20240803
  2. COSENTYX [Suspect]
     Active Substance: SECUKINUMAB
     Dosage: 300 MG, QMO
     Route: 058
  3. COSENTYX [Suspect]
     Active Substance: SECUKINUMAB
     Dosage: 150 MG, QMO
     Route: 065
  4. COSENTYX [Suspect]
     Active Substance: SECUKINUMAB
     Dosage: 150 MG, QMO
     Route: 065

REACTIONS (17)
  - Ankylosing spondylitis [Unknown]
  - Musculoskeletal discomfort [Unknown]
  - Kidney infection [Unknown]
  - Influenza like illness [Unknown]
  - Urinary tract infection [Unknown]
  - Pain [Recovered/Resolved]
  - Pain [Recovered/Resolved]
  - Burning sensation [Recovered/Resolved]
  - Injection site bruising [Recovered/Resolved]
  - Vitiligo [Not Recovered/Not Resolved]
  - Skin depigmentation [Unknown]
  - Pain [Not Recovered/Not Resolved]
  - Balance disorder [Unknown]
  - Joint injury [Not Recovered/Not Resolved]
  - Fall [Recovering/Resolving]
  - Tissue injury [Recovering/Resolving]
  - Back pain [Unknown]

NARRATIVE: CASE EVENT DATE: 20241022
